FAERS Safety Report 19341874 (Version 1)
Quarter: 2021Q2

REPORT INFORMATION
  Report Type: Spontaneous
  Country: US (occurrence: US)
  Receive Date: 20210530
  Receipt Date: 20210530
  Transmission Date: 20210717
  Serious: Yes (Other)
  Sender: FDA-Public Use
  Company Number: US-PURDUE-USA-2020-0198463

PATIENT
  Sex: Female

DRUGS (6)
  1. OXYCODONE HCL TABLETS (RHODES 91?490) [Suspect]
     Active Substance: OXYCODONE HYDROCHLORIDE
     Indication: SPINAL COMPRESSION FRACTURE
     Dosage: UNKNOWN
     Route: 048
  2. OXYCONTIN [Suspect]
     Active Substance: OXYCODONE HYDROCHLORIDE
     Indication: SPINAL COMPRESSION FRACTURE
     Dosage: UNK
     Route: 048
  3. HYDROCODONE BITARTRATE AND ACETAMINOPHEN [Suspect]
     Active Substance: ACETAMINOPHEN\HYDROCODONE BITARTRATE
     Indication: SPINAL COMPRESSION FRACTURE
     Dosage: UNKNOWN
     Route: 048
  4. TRAMADOL. [Suspect]
     Active Substance: TRAMADOL
     Indication: SPINAL COMPRESSION FRACTURE
     Dosage: UNK
     Route: 065
  5. NORCO [Suspect]
     Active Substance: ACETAMINOPHEN\HYDROCODONE BITARTRATE
     Indication: SPINAL COMPRESSION FRACTURE
     Dosage: UNKNOWN
     Route: 065
     Dates: start: 20151031, end: 20160209
  6. DILAUDID [Suspect]
     Active Substance: HYDROMORPHONE HYDROCHLORIDE
     Indication: SPINAL COMPRESSION FRACTURE
     Dosage: UNKNOWN
     Route: 048

REACTIONS (8)
  - Developmental delay [Unknown]
  - Overdose [Unknown]
  - Drug withdrawal syndrome [Not Recovered/Not Resolved]
  - Autophobia [Unknown]
  - Palpitations [Unknown]
  - Drug dependence [Unknown]
  - Impaired work ability [Unknown]
  - Anxiety [None]
